FAERS Safety Report 17618142 (Version 1)
Quarter: 2020Q2

REPORT INFORMATION
  Report Type: Spontaneous
  Country: US (occurrence: US)
  Receive Date: 20200402
  Receipt Date: 20200402
  Transmission Date: 20200713
  Serious: No
  Sender: FDA-Public Use
  Company Number: US-ROCHE-2402270

PATIENT
  Sex: Female

DRUGS (1)
  1. ERIVEDGE [Suspect]
     Active Substance: VISMODEGIB
     Indication: BASAL CELL CARCINOMA
     Dosage: NO
     Route: 065
     Dates: start: 20190821

REACTIONS (7)
  - Muscular weakness [Unknown]
  - Constipation [Unknown]
  - Decreased appetite [Unknown]
  - Retching [Unknown]
  - Nausea [Recovered/Resolved]
  - Hypoaesthesia [Unknown]
  - Asthenia [Unknown]
